FAERS Safety Report 18344536 (Version 7)
Quarter: 2021Q4

REPORT INFORMATION
  Report Type: Report from Study
  Country: US (occurrence: US)
  Receive Date: 20201005
  Receipt Date: 20211118
  Transmission Date: 20220304
  Serious: Yes (Other)
  Sender: FDA-Public Use
  Company Number: US-SHIRE-US202032174

PATIENT
  Age: 9 Year
  Sex: Male

DRUGS (3)
  1. ADVATE [Suspect]
     Active Substance: ANTIHEMOPHILIC FACTOR, HUMAN RECOMBINANT
     Indication: Product used for unknown indication
     Dosage: 2000 INTERNATIONAL UNIT, PRN
     Route: 042
  2. ADVATE [Suspect]
     Active Substance: ANTIHEMOPHILIC FACTOR, HUMAN RECOMBINANT
     Indication: Product used for unknown indication
     Dosage: 2000 INTERNATIONAL UNIT, PRN
     Route: 042
  3. ADVATE [Suspect]
     Active Substance: ANTIHEMOPHILIC FACTOR, HUMAN RECOMBINANT
     Indication: Product used for unknown indication
     Dosage: 2000 INTERNATIONAL UNIT, PRN
     Route: 042

REACTIONS (9)
  - Haemarthrosis [Recovered/Resolved]
  - Contusion [Unknown]
  - Haemorrhage [Unknown]
  - Limb injury [Unknown]
  - Peripheral swelling [Unknown]
  - Fall [Unknown]
  - Joint injury [Unknown]
  - Soft tissue swelling [Unknown]
  - Ecchymosis [Unknown]

NARRATIVE: CASE EVENT DATE: 20200925
